FAERS Safety Report 15969445 (Version 3)
Quarter: 2019Q2

REPORT INFORMATION
  Report Type: Report from Study
  Country: US (occurrence: US)
  Receive Date: 20190215
  Receipt Date: 20190613
  Transmission Date: 20190711
  Serious: Yes (Other)
  Sender: FDA-Public Use
  Company Number: US-ACTELION-A-US2019-185912

PATIENT
  Sex: Female
  Weight: 55.33 kg

DRUGS (2)
  1. OPSUMIT [Suspect]
     Active Substance: MACITENTAN
     Indication: PULMONARY ARTERIAL HYPERTENSION
     Dosage: 10 MG, QD
     Route: 048
     Dates: start: 20140127
  2. UPTRAVI [Suspect]
     Active Substance: SELEXIPAG
     Indication: PULMONARY ARTERIAL HYPERTENSION
     Dosage: 1600 MCG, BID
     Route: 048

REACTIONS (7)
  - Liver disorder [Unknown]
  - Hepatic cirrhosis [Unknown]
  - Condition aggravated [Unknown]
  - Cerebral disorder [Unknown]
  - Pulmonary arterial hypertension [Unknown]
  - Clostridium difficile infection [Unknown]
  - Fluid retention [Unknown]
